FAERS Safety Report 6491258-6 (Version None)
Quarter: 2009Q4

REPORT INFORMATION
  Report Type: 
  Country: None (occurrence: None)
  Receive Date: 20091211
  Receipt Date: 20091202
  Transmission Date: 20100525
  Serious: Yes (Hospitalization, Other)
  Sender: FDA-Public Use
  Company Number: PHHY2009US53604

PATIENT
  Age: 58 Year
  Sex: Male
  Weight: 115.65 kg

DRUGS (2)
  1. DIOVAN HCT [Suspect]
     Indication: HYPERTENSION
     Dosage: 1 TABLET QD
     Route: 048
     Dates: start: 20071115, end: 20091127
  2. ASPIRIN [Concomitant]

REACTIONS (3)
  - ANAPHYLACTIC REACTION [None]
  - RASH PRURITIC [None]
  - WEIGHT DECREASED [None]
